FAERS Safety Report 8550824-4 (Version None)
Quarter: 2012Q3

REPORT INFORMATION
  Report Type: 
  Country: None (occurrence: None)
  Receive Date: 20120730
  Receipt Date: 20110822
  Transmission Date: 20120928
  Serious: No
  Sender: FDA-Public Use
  Company Number: US-ALLERGAN-1111261US

PATIENT
  Sex: Female

DRUGS (2)
  1. LUMIGAN [Suspect]
     Indication: GLAUCOMA
     Dosage: 1 GTT, QHS
     Route: 047
     Dates: start: 20110819
  2. NIACIN [Concomitant]

REACTIONS (4)
  - FLATULENCE [None]
  - ABDOMINAL PAIN UPPER [None]
  - GASTROINTESTINAL PAIN [None]
  - ERYTHEMA [None]
